FAERS Safety Report 6444270-7 (Version None)
Quarter: 2009Q4

REPORT INFORMATION
  Report Type: 
  Country: None (occurrence: None)
  Receive Date: 20091116
  Receipt Date: 20091116
  Transmission Date: 20100525
  Serious: Yes (Other)
  Sender: FDA-Public Use
  Company Number: None

PATIENT
  Age: 2 Year
  Sex: Female

DRUGS (1)
  1. ALBUTEROL [Suspect]
     Indication: BRONCHIAL HYPERREACTIVITY
     Dosage: ONE UNIT Q4 PRN PO COUGH/WHEEZE
     Route: 048
     Dates: start: 20031021

REACTIONS (2)
  - PSYCHOMOTOR HYPERACTIVITY [None]
  - TONGUE BITING [None]
